FAERS Safety Report 18354108 (Version 1)
Quarter: 2020Q4

REPORT INFORMATION
  Report Type: Spontaneous
  Country: US (occurrence: US)
  Receive Date: 20201006
  Receipt Date: 20201006
  Transmission Date: 20210114
  Serious: Yes (Death)
  Sender: FDA-Public Use
  Company Number: None

PATIENT
  Age: 60 Year
  Sex: Female
  Weight: 83.1 kg

DRUGS (17)
  1. PIPERACILLIN/TAZOBACTAM 3.375GM IV Q8HR [Concomitant]
     Dates: start: 20200605, end: 20200612
  2. DEXAMETHASONE 20MG IV DAI10 [Concomitant]
     Dates: start: 20200617, end: 20200623
  3. FAMOTIDINE 20MG IV BID X3 DAYS THEN 20MG IV DAILY/BID [Concomitant]
     Dates: start: 20200605, end: 20200626
  4. CEFTOLOZANE/TAZOBACTAM 3GM IV Q8HR [Concomitant]
     Dates: start: 20200629, end: 20200705
  5. DEXAMETHASONE 20MG IV DAILY [Concomitant]
     Dates: start: 20200606, end: 20200610
  6. ZINC SULFATE 220MG FEED TUBE ONCE DAILY [Concomitant]
     Dates: start: 20200605, end: 20200630
  7. CONVALESCENT PLASMA [Concomitant]
     Active Substance: HUMAN PLASMA
     Dates: start: 20200603, end: 20200603
  8. VANCOMYCIN IV PER PROTOCOL [Concomitant]
     Dates: start: 20200605, end: 20200608
  9. INSULIN GLARGINE/LISPRO/REGULAR [Concomitant]
     Dates: start: 20200606, end: 20200705
  10. METHYLPREDNISOLONE 40MG IV Q6HR X2DAYS THEN 40MG IV Q12HR [Concomitant]
     Dates: start: 20200624, end: 20200705
  11. METRONIDAZOLE 500MG IV Q8HR [Concomitant]
     Dates: start: 20200705, end: 20200705
  12. VANCOMYCIN 500MG FEED TUBE Q6HR [Concomitant]
     Dates: start: 20200705, end: 20200705
  13. REMDESIVIR. [Suspect]
     Active Substance: REMDESIVIR
     Indication: COVID-19 PNEUMONIA
     Route: 042
     Dates: start: 20200605, end: 20200608
  14. CEFEPIME 1GM IV Q8HR [Concomitant]
     Dates: start: 20200626, end: 20200629
  15. ENOXAPARIN 40MG SQ ONCE THEN 80MG SQ BID [Concomitant]
     Dates: start: 20200605, end: 20200626
  16. MEROPENEM 0.5GM IV ONCE THEN Q8HR [Concomitant]
     Dates: start: 20200625, end: 20200626
  17. PANTOPRAZOLE 40MG IV BID [Concomitant]
     Dates: start: 20200626, end: 20200705

REACTIONS (5)
  - Pneumonia [None]
  - Acute kidney injury [None]
  - Renal tubular necrosis [None]
  - Respiratory failure [None]
  - Hyperkalaemia [None]

NARRATIVE: CASE EVENT DATE: 20200705
